FAERS Safety Report 17742114 (Version 1)
Quarter: 2020Q2

REPORT INFORMATION
  Report Type: Spontaneous
  Country: US (occurrence: US)
  Receive Date: 20200504
  Receipt Date: 20200504
  Transmission Date: 20200714
  Serious: Yes (Other)
  Sender: FDA-Public Use
  Company Number: US-PFIZER INC-2019499217

PATIENT
  Age: 56 Year
  Sex: Male

DRUGS (1)
  1. XELJANZ [Suspect]
     Active Substance: TOFACITINIB CITRATE
     Indication: RHEUMATOID ARTHRITIS
     Dosage: 10 MG, ONCE A DAY

REACTIONS (6)
  - Cardiac failure congestive [Unknown]
  - Cardiomegaly [Unknown]
  - Dyspnoea [Unknown]
  - Cardiovascular disorder [Unknown]
  - Lung disorder [Unknown]
  - Off label use [Unknown]
